FAERS Safety Report 4459427-4 (Version None)
Quarter: 2004Q3

REPORT INFORMATION
  Report Type: 
  Country: None (occurrence: None)
  Receive Date: 20040927
  Receipt Date: 20040727
  Transmission Date: 20050211
  Serious: Yes (Hospitalization)
  Sender: FDA-Public Use
  Company Number: JP-GLAXOSMITHKLINE-B0341034A

PATIENT
  Age: 79 Year
  Sex: Female
  Weight: 47 kg

DRUGS (11)
  1. PAXIL [Suspect]
     Indication: DEPRESSION
     Dosage: 10MG PER DAY
     Route: 048
     Dates: start: 20040311, end: 20040714
  2. SEPAZON [Concomitant]
     Indication: DEPRESSION
     Dosage: 2MG PER DAY
     Route: 048
     Dates: start: 20040407
  3. LENDORMIN [Concomitant]
     Indication: INSOMNIA
     Dosage: .25MG PER DAY
     Route: 048
     Dates: start: 20040311
  4. BUFFERIN [Concomitant]
     Indication: VERTEBROBASILAR INSUFFICIENCY
     Dosage: 100MG PER DAY
     Route: 048
     Dates: start: 19970101
  5. ZYLORIC [Concomitant]
     Indication: HYPERURICAEMIA
     Dosage: 100MG PER DAY
     Route: 048
     Dates: start: 19970101
  6. DOGMATYL [Concomitant]
     Indication: DEPRESSION
     Dosage: 50MG PER DAY
     Route: 048
     Dates: start: 20040204, end: 20040311
  7. DEPROMEL [Concomitant]
     Indication: DEPRESSION
     Route: 048
     Dates: start: 20040311, end: 20040402
  8. LEXOTAN [Concomitant]
     Indication: DEPRESSION
     Dosage: 2MG PER DAY
     Route: 048
     Dates: start: 20040311, end: 20040407
  9. PANALDINE [Concomitant]
     Indication: VERTEBROBASILAR INSUFFICIENCY
     Dosage: 100MG PER DAY
     Route: 048
     Dates: start: 19970101
  10. GASTER [Concomitant]
     Indication: GASTRITIS
     Dosage: 20MG PER DAY
     Route: 048
     Dates: start: 19970101
  11. BISOPROLOL FUMARATE [Concomitant]
     Dates: start: 20040301, end: 20040714

REACTIONS (6)
  - ATRIAL FIBRILLATION [None]
  - ATRIAL FLUTTER [None]
  - CARDIAC FAILURE [None]
  - FACE OEDEMA [None]
  - PLEURAL EFFUSION [None]
  - TACHYCARDIA [None]
